FAERS Safety Report 5519521-3 (Version None)
Quarter: 2007Q4

REPORT INFORMATION
  Report Type: 
  Country: None (occurrence: None)
  Receive Date: 20071116
  Receipt Date: 20071112
  Transmission Date: 20080405
  Serious: Yes (Other)
  Sender: FDA-Public Use
  Company Number: A0693929A

PATIENT
  Age: 49 Year
  Sex: Female

DRUGS (3)
  1. LAMICTAL [Suspect]
     Indication: DEPRESSION
     Dosage: 12.5MG PER DAY
     Route: 048
     Dates: start: 20070301, end: 20071106
  2. SONATA [Concomitant]
  3. KLONOPIN [Concomitant]

REACTIONS (10)
  - AGITATION [None]
  - ANXIETY [None]
  - BURNING SENSATION [None]
  - ERYTHEMA [None]
  - MIDDLE INSOMNIA [None]
  - NEUROPATHY [None]
  - PALPITATIONS [None]
  - PARAESTHESIA [None]
  - PRURITUS [None]
  - RASH [None]
